FAERS Safety Report 5935525-0 (Version None)
Quarter: 2008Q4

REPORT INFORMATION
  Report Type: 
  Country: None (occurrence: None)
  Receive Date: 20081030
  Receipt Date: 20081022
  Transmission Date: 20090506
  Serious: Yes (Hospitalization)
  Sender: FDA-Public Use
  Company Number: KR-WYE-H06288908

PATIENT
  Sex: Male
  Weight: 76 kg

DRUGS (8)
  1. RAPAMUNE [Suspect]
     Indication: PROPHYLAXIS AGAINST TRANSPLANT REJECTION
     Route: 048
     Dates: start: 20080722
  2. MYCOPHENOLATE MOFETIL [Concomitant]
     Indication: PROPHYLAXIS AGAINST TRANSPLANT REJECTION
     Dosage: 1000 MG, FREQUENCY UNSPECIFIED
     Route: 048
     Dates: start: 20080918
  3. MAGNESIUM OXIDE [Concomitant]
     Indication: CONSTIPATION
     Dosage: 250 MG, FREQUENCY UNSPECIFIED
     Route: 048
     Dates: start: 20080916, end: 20081017
  4. BENZBROMARONE [Concomitant]
     Indication: GOUT
     Dosage: 50 MG, FREQUENCY UNSPECIFIED
     Route: 048
     Dates: start: 20070130
  5. BENZYDAMINE [Concomitant]
     Indication: MOUTH ULCERATION
     Dosage: 100 ML (GARGLE)
     Dates: start: 20080801, end: 20081017
  6. TRIAMCINOLONE [Concomitant]
     Indication: MOUTH ULCERATION
     Dosage: 10 G (OINTMENT)
     Dates: start: 20080801, end: 20081017
  7. DEFLAZACORT [Concomitant]
     Indication: PROPHYLAXIS AGAINST TRANSPLANT REJECTION
     Dosage: 3 MG, FREQUENCY UNSPECIFIED
     Route: 048
     Dates: start: 20061018
  8. PRAVASTATIN [Concomitant]
     Indication: HYPERLIPIDAEMIA
     Dosage: 2 MG, FREQUENCY UNSPECIFIED
     Route: 048
     Dates: start: 20080801

REACTIONS (1)
  - PHARYNGITIS [None]
